FAERS Safety Report 22089040 (Version 1)
Quarter: 2023Q1

REPORT INFORMATION
  Report Type: Report from Study
  Country: GT (occurrence: GT)
  Receive Date: 20230313
  Receipt Date: 20230313
  Transmission Date: 20230418
  Serious: Yes (Disabling)
  Sender: FDA-Public Use
  Company Number: GT-MYLANLABS-2023M1026354

PATIENT
  Sex: Male
  Weight: 81.6 kg

DRUGS (2)
  1. LIPITOR [Suspect]
     Active Substance: ATORVASTATIN CALCIUM
     Indication: Cerebrovascular disorder
     Dosage: 1 DOSAGE FORM, QD
     Route: 048
     Dates: start: 20000307
  2. NORVASC [Suspect]
     Active Substance: AMLODIPINE BESYLATE
     Indication: Cerebrovascular disorder
     Dosage: 1 DOSAGE FORM, QD
     Route: 048
     Dates: start: 20000307

REACTIONS (2)
  - Memory impairment [Not Recovered/Not Resolved]
  - COVID-19 [Not Recovered/Not Resolved]
